FAERS Safety Report 8449965-1 (Version None)
Quarter: 2012Q2

REPORT INFORMATION
  Report Type: 
  Country: None (occurrence: None)
  Receive Date: 20120620
  Receipt Date: 20120608
  Transmission Date: 20120825
  Serious: Yes (Hospitalization, Other)
  Sender: FDA-Public Use
  Company Number: US-SANOFI-AVENTIS-2012SA041415

PATIENT
  Sex: Female

DRUGS (2)
  1. GLUCOPHAGE [Suspect]
  2. DIABETA [Suspect]

REACTIONS (6)
  - LARYNGEAL POLYP [None]
  - CONDITION AGGRAVATED [None]
  - RESPIRATORY DISTRESS [None]
  - ASTHMA [None]
  - VOLVULUS [None]
  - CHRONIC OBSTRUCTIVE PULMONARY DISEASE [None]
